FAERS Safety Report 25395504 (Version 2)
Quarter: 2025Q3

REPORT INFORMATION
  Report Type: Spontaneous
  Country: US (occurrence: US)
  Receive Date: 20250604
  Receipt Date: 20250702
  Transmission Date: 20251021
  Serious: Yes (Hospitalization)
  Sender: PFIZER
  Company Number: US-PFIZER INC-202200056800

PATIENT
  Age: 74 Year
  Sex: Male
  Weight: 92.53 kg

DRUGS (2)
  1. VYNDAMAX [Suspect]
     Active Substance: TAFAMIDIS
     Indication: Cardiac disorder
     Dosage: 61MG CAPSULE, TAKES ONCE A DAY IN THE MORNING
     Route: 048
     Dates: start: 20200115
  2. VYNDAMAX [Suspect]
     Active Substance: TAFAMIDIS
     Dosage: 61MG CAPSULE EVERY DAY
     Route: 048

REACTIONS (5)
  - Fluid retention [Recovered/Resolved]
  - Swelling [Unknown]
  - Dizziness [Recovered/Resolved]
  - Fall [Recovered/Resolved]
  - Balance disorder [Recovered/Resolved]

NARRATIVE: CASE EVENT DATE: 20250112
